FAERS Safety Report 5180445-5 (Version None)
Quarter: 2006Q4

REPORT INFORMATION
  Report Type: 
  Country: None (occurrence: None)
  Receive Date: 20060919
  Receipt Date: 20060816
  Transmission Date: 20070319
  Serious: No
  Sender: FDA-Public Use
  Company Number: 2006US001765

PATIENT
  Age: 36 Year
  Sex: Female
  Weight: 75.7 kg

DRUGS (1)
  1. VESICARE [Suspect]
     Indication: BLADDER SPASM
     Dosage: 5 MG, UID/QD, ORAL;  5 MG, QOD, ORAL
     Route: 048
     Dates: start: 20060530

REACTIONS (1)
  - VISION BLURRED [None]
